FAERS Safety Report 8589335-9 (Version None)
Quarter: 2012Q3

REPORT INFORMATION
  Report Type: 
  Country: None (occurrence: None)
  Receive Date: 20120813
  Receipt Date: 20120808
  Transmission Date: 20120928
  Serious: Yes (Life-Threatening, Hospitalization)
  Sender: FDA-Public Use
  Company Number: IT-ASTRAZENECA-2012SE21263

PATIENT
  Age: 20209 Day
  Sex: Male

DRUGS (2)
  1. ESOMEPRAZOLE MAGNESIUM [Suspect]
     Route: 048
  2. ESOMEPRAZOLE MAGNESIUM [Suspect]
     Indication: GASTROOESOPHAGEAL REFLUX DISEASE
     Route: 048
     Dates: start: 20020301

REACTIONS (4)
  - BEZOAR [None]
  - CONSTIPATION [None]
  - INTESTINAL OBSTRUCTION [None]
  - ABDOMINAL PAIN [None]
